FAERS Safety Report 9003489 (Version 1)
Quarter: 2013Q1

REPORT INFORMATION
  Report Type: Spontaneous
  Country: US (occurrence: US)
  Receive Date: 20130108
  Receipt Date: 20130108
  Transmission Date: 20140127
  Serious: No
  Sender: FDA-Public Use
  Company Number: US-B.I. PHARMACEUTICALS,INC./RIDGEFIELD-2013-BI-00422BP

PATIENT
  Sex: Female
  Weight: 61 kg

DRUGS (3)
  1. COMBIVENT [Suspect]
     Indication: CHRONIC OBSTRUCTIVE PULMONARY DISEASE
     Route: 055
     Dates: start: 20121221, end: 20121224
  2. ADVAIR [Concomitant]
     Route: 055
  3. NASONEX [Concomitant]
     Route: 045

REACTIONS (2)
  - Pruritus [Recovered/Resolved]
  - Syncope [Recovered/Resolved]
